FAERS Safety Report 10907336 (Version 1)
Quarter: 2015Q1

REPORT INFORMATION
  Report Type: Spontaneous
  Country: US (occurrence: None)
  Receive Date: 20150309
  Receipt Date: 20150309
  Transmission Date: 20150721
  Serious: Yes (Disabling)
  Sender: FDA-Public Use
  Company Number: None

PATIENT
  Age: 52 Year
  Sex: Female
  Weight: 54.43 kg

DRUGS (3)
  1. SAVELLA [Suspect]
     Active Substance: MILNACIPRAN HYDROCHLORIDE
     Indication: FIBROMYALGIA
     Dosage: 1 TO 2 PER DAY
     Route: 048
     Dates: start: 20150303, end: 20150303
  2. TEMAZEPAM. [Concomitant]
     Active Substance: TEMAZEPAM
  3. XAANX [Concomitant]

REACTIONS (3)
  - Drug ineffective [None]
  - Insomnia [None]
  - Stress [None]

NARRATIVE: CASE EVENT DATE: 20150303
